FAERS Safety Report 17178919 (Version 1)
Quarter: 2019Q4

REPORT INFORMATION
  Report Type: Spontaneous
  Country: GB (occurrence: GB)
  Receive Date: 20191219
  Receipt Date: 20191219
  Transmission Date: 20200122
  Serious: Yes (Disabling)
  Sender: FDA-Public Use
  Company Number: GB-ACCORD-166164

PATIENT
  Age: 60 Year
  Sex: Female
  Weight: 85.72 kg

DRUGS (5)
  1. BOOTS COD LIVER OIL [Concomitant]
  2. BETAHISTINE [Concomitant]
     Active Substance: BETAHISTINE
     Indication: MENIERE^S DISEASE
  3. METFORMIN HYDROCHLORIDE. [Concomitant]
     Active Substance: METFORMIN HYDROCHLORIDE
  4. SIMVASTATIN ACCORD [Suspect]
     Active Substance: SIMVASTATIN
     Indication: DIABETES MELLITUS
     Route: 048
  5. CETIRIZINE [Concomitant]
     Active Substance: CETIRIZINE HYDROCHLORIDE

REACTIONS (8)
  - Abdominal pain upper [Unknown]
  - Reaction to excipient [Unknown]
  - Asthenia [Not Recovered/Not Resolved]
  - Arthralgia [Not Recovered/Not Resolved]
  - Alopecia [Not Recovered/Not Resolved]
  - Off label use [Unknown]
  - Dysphonia [Unknown]
  - Drug interaction [Unknown]
